FAERS Safety Report 15459094 (Version 1)
Quarter: 2018Q4

REPORT INFORMATION
  Report Type: Spontaneous
  Country: US (occurrence: US)
  Receive Date: 20181001
  Receipt Date: 20181001
  Transmission Date: 20190204
  Serious: Yes (Hospitalization)
  Sender: FDA-Public Use
  Company Number: None

PATIENT
  Age: 62 Year
  Sex: Female

DRUGS (22)
  1. MECLIZINE/SUPARTZ/SIMVASTATIN [Concomitant]
  2. LEVOTHYROXIN/SYMBICORT/IBUPROFEN [Concomitant]
  3. HYDROCO/APAP/SIMVASTATIN [Concomitant]
  4. CLONAZEPAM/HYDROXYZ HCL [Concomitant]
  5. VERAPAMIL/WELLBUTRIN/LAMOTRIGINE [Concomitant]
  6. ONDANSETRON/LOSARTAN POT [Concomitant]
  7. ADVAIR HFA/MECLIZINE [Concomitant]
  8. DICLOFENAC/CYCLOBENZAPR/NASONEX [Concomitant]
  9. LOSARTAN/HCT/SEROQUEL [Concomitant]
  10. VALPROIC ACID/CLARITIN [Concomitant]
  11. TRULANCE/VENTOLIN/ETODOLAC [Concomitant]
  12. VERAPAMIL/DIPHEN/ATROP [Concomitant]
  13. TRAMADOL/ETODOLAC [Concomitant]
  14. METHYLPHENIC/IMITREX/SUMATRIPTAN [Concomitant]
  15. PROAIR HFA/ALBUTEROL/COLCHICINE [Concomitant]
  16. LAMOTRIGINE/TRAMADOL/BUPROPION [Concomitant]
  17. FORTEO [Suspect]
     Active Substance: TERIPARATIDE
     Indication: OSTEOARTHRITIS
     Route: 058
     Dates: start: 20170922
  18. DOXYCYCL HYC/OXYCODONE [Concomitant]
  19. OXYCOD/APAP/MELOXICAM/OMEPRAZOLE [Concomitant]
  20. ALPRAZOLAM/HYDROCOD/IBU/VERAPAMIL [Concomitant]
  21. FLUTICASONE/BIOTIN [Concomitant]
  22. FLUOXETINE/DICYCLOMINE [Concomitant]

REACTIONS (4)
  - Chest injury [None]
  - Fall [None]
  - Joint injury [None]
  - Therapy cessation [None]

NARRATIVE: CASE EVENT DATE: 20180922
